FAERS Safety Report 8013105-3 (Version None)
Quarter: 2011Q4

REPORT INFORMATION
  Report Type: 
  Country: None (occurrence: None)
  Receive Date: 20111229
  Receipt Date: 20111227
  Transmission Date: 20120403
  Serious: Yes (Other)
  Sender: FDA-Public Use
  Company Number: JP-PFIZER INC-2011314267

PATIENT
  Age: 16 Year
  Sex: Female

DRUGS (4)
  1. ZOLOFT [Suspect]
     Indication: DEPRESSIVE SYMPTOM
     Dosage: 25 MG DAILY
     Route: 048
     Dates: start: 20111118, end: 20111202
  2. ZOLOFT [Suspect]
     Dosage: 75 MG DAILY
     Route: 048
     Dates: start: 20111203, end: 20111206
  3. ZOLPIDEM [Concomitant]
     Dosage: 5 MG/DAY
     Route: 048
     Dates: start: 20111203, end: 20111206
  4. FLUNITRAZEPAM [Concomitant]
     Dosage: 2 MG/DAY
     Route: 048
     Dates: start: 20111203, end: 20111206

REACTIONS (3)
  - RASH [None]
  - NASOPHARYNGITIS [None]
  - URINARY TRACT INFECTION [None]
